FAERS Safety Report 13368924 (Version 1)
Quarter: 2017Q1

REPORT INFORMATION
  Report Type: Spontaneous
  Country: FR (occurrence: FR)
  Receive Date: 20170324
  Receipt Date: 20170324
  Transmission Date: 20170429
  Serious: Yes (Other)
  Sender: FDA-Public Use
  Company Number: FR-JNJFOC-20170321307

PATIENT
  Sex: Female

DRUGS (1)
  1. HALDOL DECANOATE [Suspect]
     Active Substance: HALOPERIDOL DECANOATE
     Indication: PSYCHOTIC DISORDER
     Dosage: TREATED FOR ABOUT 3 YEARS
     Route: 030
     Dates: start: 2014

REACTIONS (3)
  - Intentional product use issue [Unknown]
  - Thrombosis [Unknown]
  - Off label use [Unknown]
